FAERS Safety Report 7198163-0 (Version None)
Quarter: 2010Q4

REPORT INFORMATION
  Report Type: 
  Country: None (occurrence: None)
  Receive Date: 20101227
  Receipt Date: 20101213
  Transmission Date: 20110411
  Serious: Yes (Hospitalization)
  Sender: FDA-Public Use
  Company Number: PHHY2010BR85569

PATIENT
  Sex: Male

DRUGS (9)
  1. DIOVAN HCT [Suspect]
     Indication: BLOOD PRESSURE INCREASED
  2. TAMSULOSIN [Concomitant]
     Dosage: 0.4 MG, TWO TABLETS DAILY
     Route: 048
  3. PREDNISONE [Concomitant]
     Dosage: 5MG, THREE TABLETS DAILY
     Route: 048
  4. SERTRALINE HYDROCHLORIDE [Concomitant]
     Dosage: 25MG, TWO TABLETS DAILY
  5. AAS [Concomitant]
     Dosage: 100 MG, TWO TABLETS DAILY
  6. GERIATON [Concomitant]
     Dosage: ONE TABLET DAILY
     Route: 048
  7. RIVOTRIL [Concomitant]
     Dosage: 2 MG, ONE TABLET DAILY
  8. CINNARIZINE [Concomitant]
     Dosage: 25MG, ONE TABLET DAILY
     Route: 048
  9. DIMORF [Concomitant]
     Dosage: 30 MG, THREE TABLETS, DAILY

REACTIONS (4)
  - APHASIA [None]
  - CONFUSIONAL STATE [None]
  - GAIT DISTURBANCE [None]
  - MOVEMENT DISORDER [None]
